FAERS Safety Report 5844738-8 (Version None)
Quarter: 2008Q3

REPORT INFORMATION
  Report Type: 
  Country: None (occurrence: None)
  Receive Date: 20080814
  Receipt Date: 20080806
  Transmission Date: 20090109
  Serious: Yes (Other)
  Sender: FDA-Public Use
  Company Number: US-JNJFOC-20080800970

PATIENT
  Age: 61 Year
  Sex: Female
  Weight: 59.88 kg

DRUGS (5)
  1. LEVAQUIN [Suspect]
     Indication: URINARY TRACT INFECTION
     Route: 048
  2. MONOPRIL [Concomitant]
     Indication: HYPERTENSION
     Route: 048
  3. CRESTOR [Concomitant]
     Indication: HYPERLIPIDAEMIA
     Route: 048
  4. VICODIN [Concomitant]
     Indication: PAIN
     Dosage: AS NEEDED
     Route: 048
  5. LUNESTA [Concomitant]
     Indication: INSOMNIA
     Dosage: AS NEEDED
     Route: 048

REACTIONS (7)
  - CARTILAGE INJURY [None]
  - CONTUSION [None]
  - GAIT DISTURBANCE [None]
  - JOINT SWELLING [None]
  - PARAESTHESIA [None]
  - TENDON PAIN [None]
  - TENDON RUPTURE [None]
